FAERS Safety Report 20654834 (Version 1)
Quarter: 2022Q1

REPORT INFORMATION
  Report Type: Spontaneous
  Country: GB (occurrence: GB)
  Receive Date: 20220330
  Receipt Date: 20220330
  Transmission Date: 20220423
  Serious: Yes (Hospitalization, Other)
  Sender: FDA-Public Use
  Company Number: GB-STRIDES ARCOLAB LIMITED-2022SP003256

PATIENT
  Age: 60 Year
  Sex: Female

DRUGS (1)
  1. PREDNISOLONE [Suspect]
     Active Substance: PREDNISOLONE
     Indication: Myasthenia gravis
     Dosage: 100 MILLIGRAM, QOD, WITH INCREASING DOSES
     Route: 065

REACTIONS (5)
  - Anaemia [Unknown]
  - Gastritis [Unknown]
  - Obesity [Unknown]
  - Steroid diabetes [Unknown]
  - Diabetes mellitus [Unknown]
